FAERS Safety Report 6148060-4 (Version None)
Quarter: 2009Q2

REPORT INFORMATION
  Report Type: 
  Country: None (occurrence: None)
  Receive Date: 20090408
  Receipt Date: 20090403
  Transmission Date: 20091009
  Serious: Yes (Other)
  Sender: FDA-Public Use
  Company Number: B0553077A

PATIENT
  Sex: Female

DRUGS (2)
  1. CLAVAMOX [Suspect]
     Indication: OTITIS MEDIA ACUTE
     Dosage: 1.3G TWICE PER DAY
     Route: 048
     Dates: start: 20081212, end: 20081212
  2. BIOFERMIN [Concomitant]
     Dosage: 3G PER DAY
     Route: 048
     Dates: start: 20081212

REACTIONS (2)
  - CONVULSION [None]
  - TREMOR [None]
